FAERS Safety Report 19462775 (Version 2)
Quarter: 2021Q3

REPORT INFORMATION
  Report Type: Report from Study
  Country: CN (occurrence: CN)
  Receive Date: 20210625
  Receipt Date: 20210709
  Transmission Date: 20211014
  Serious: Yes (Hospitalization)
  Sender: FDA-Public Use
  Company Number: CN-ASTRAZENECA-2021A547907

PATIENT
  Age: 29836 Day
  Sex: Male

DRUGS (18)
  1. CARBOPLATIN. [Suspect]
     Active Substance: CARBOPLATIN
     Indication: SMALL CELL LUNG CANCER
     Dosage: 5 MG Q3W FOR THE FIRST 4 TO 6 CYCLES
     Route: 042
     Dates: start: 20210428
  2. ETOPOSIDE. [Suspect]
     Active Substance: ETOPOSIDE
     Indication: SMALL CELL LUNG CANCER
     Dosage: 80MG/M2 Q3W FOR THE FIRST 4 TO 6 CYCLES
     Route: 042
     Dates: start: 20210404
  3. ETOPOSIDE. [Suspect]
     Active Substance: ETOPOSIDE
     Indication: SMALL CELL LUNG CANCER
     Dosage: 80MG/M2 Q3W FOR THE FIRST 4 TO 6 CYCLES
     Route: 042
     Dates: start: 20210405
  4. FINASTERIDE TABLETS [Concomitant]
     Active Substance: FINASTERIDE
     Indication: BENIGN PROSTATIC HYPERPLASIA
     Route: 065
     Dates: start: 202011
  5. ETOPOSIDE. [Suspect]
     Active Substance: ETOPOSIDE
     Indication: SMALL CELL LUNG CANCER
     Dosage: 80MG/M2 Q3W FOR THE FIRST 4 TO 6 CYCLES
     Route: 042
     Dates: start: 20210428
  6. CARBOPLATIN. [Suspect]
     Active Substance: CARBOPLATIN
     Indication: SMALL CELL LUNG CANCER
     Dosage: 5 MG Q3W FOR THE FIRST 4 TO 6 CYCLES
     Route: 042
     Dates: start: 20210403
  7. NIFEDIPINE SUSTAINED RELEASE TABLETS [Concomitant]
     Indication: HYPERTENSION
     Route: 065
     Dates: start: 2010
  8. DURVALUMAB. [Suspect]
     Active Substance: DURVALUMAB
     Indication: SMALL CELL LUNG CANCER
     Dosage: 1500 MG Q3W FOR THE FIRST 4 TO 6 CYCLES, THEN Q4W
     Route: 042
     Dates: start: 20210403, end: 20210403
  9. DURVALUMAB. [Suspect]
     Active Substance: DURVALUMAB
     Indication: SMALL CELL LUNG CANCER
     Dosage: 1500 MG Q3W FOR THE FIRST 4 TO 6 CYCLES, THEN Q4W
     Route: 042
     Dates: start: 20210619, end: 20210619
  10. ETOPOSIDE. [Suspect]
     Active Substance: ETOPOSIDE
     Indication: SMALL CELL LUNG CANCER
     Dosage: 80MG/M2 Q3W FOR THE FIRST 4 TO 6 CYCLES
     Route: 042
     Dates: start: 20210403
  11. ETOPOSIDE. [Suspect]
     Active Substance: ETOPOSIDE
     Indication: SMALL CELL LUNG CANCER
     Dosage: 80MG/M2 Q3W FOR THE FIRST 4 TO 6 CYCLES
     Route: 042
     Dates: start: 20210430
  12. ETOPOSIDE. [Suspect]
     Active Substance: ETOPOSIDE
     Indication: SMALL CELL LUNG CANCER
     Dosage: 80MG/M2 Q3W FOR THE FIRST 4 TO 6 CYCLES
     Route: 042
     Dates: start: 20210528, end: 20210528
  13. ETOPOSIDE. [Suspect]
     Active Substance: ETOPOSIDE
     Indication: SMALL CELL LUNG CANCER
     Dosage: 80MG/M2 Q3W FOR THE FIRST 4 TO 6 CYCLES
     Route: 042
     Dates: start: 20210530, end: 20210530
  14. DURVALUMAB. [Suspect]
     Active Substance: DURVALUMAB
     Indication: SMALL CELL LUNG CANCER
     Dosage: 1500 MG Q3W FOR THE FIRST 4 TO 6 CYCLES, THEN Q4W
     Route: 042
     Dates: start: 20210528, end: 20210528
  15. DURVALUMAB. [Suspect]
     Active Substance: DURVALUMAB
     Indication: SMALL CELL LUNG CANCER
     Dosage: 1500 MG Q3W FOR THE FIRST 4 TO 6 CYCLES, THEN Q4W
     Route: 042
     Dates: start: 20210428, end: 20210428
  16. ETOPOSIDE. [Suspect]
     Active Substance: ETOPOSIDE
     Indication: SMALL CELL LUNG CANCER
     Dosage: 80MG/M2 Q3W FOR THE FIRST 4 TO 6 CYCLES
     Route: 042
     Dates: start: 20210529, end: 20210529
  17. CARBOPLATIN. [Suspect]
     Active Substance: CARBOPLATIN
     Indication: SMALL CELL LUNG CANCER
     Dosage: 5 MG Q3W FOR THE FIRST 4 TO 6 CYCLES
     Route: 042
     Dates: start: 20210528, end: 20210528
  18. ETOPOSIDE. [Suspect]
     Active Substance: ETOPOSIDE
     Indication: SMALL CELL LUNG CANCER
     Dosage: 80MG/M2 Q3W FOR THE FIRST 4 TO 6 CYCLES
     Route: 042
     Dates: start: 20210429

REACTIONS (1)
  - Myelosuppression [Recovered/Resolved]

NARRATIVE: CASE EVENT DATE: 20210619
